FAERS Safety Report 19762015 (Version 1)
Quarter: 2021Q3

REPORT INFORMATION
  Report Type: Spontaneous
  Country: US (occurrence: US)
  Receive Date: 20210827
  Receipt Date: 20210827
  Transmission Date: 20211014
  Serious: No
  Sender: FDA-Public Use
  Company Number: US-ANIPHARMA-2021-US-003148

PATIENT
  Sex: Female
  Weight: 69.85 kg

DRUGS (11)
  1. BERBERINE [Concomitant]
     Active Substance: BERBERINE
     Route: 065
  2. ZINC. [Concomitant]
     Active Substance: ZINC
     Route: 065
  3. FIBER FLOW [Concomitant]
     Route: 065
  4. VITAMIN B?100 COMPLEX [Concomitant]
     Route: 065
  5. FORESTEROL [Concomitant]
     Route: 065
  6. COENZYME Q10 [Concomitant]
     Active Substance: DIETARY SUPPLEMENT\UBIDECARENONE
     Route: 065
  7. IBRANCE [Suspect]
     Active Substance: PALBOCICLIB
     Dosage: 125MG BY MOUTH 21 DAYS ON, 7 DAYS OFF
     Route: 048
  8. ANASTROZOLE. [Suspect]
     Active Substance: ANASTROZOLE
     Indication: PRODUCT USED FOR UNKNOWN INDICATION
     Route: 065
  9. ANXIETY BALANCE [Concomitant]
     Route: 065
  10. GARLIC. [Concomitant]
     Active Substance: GARLIC
     Route: 065
  11. PROMEGA [Concomitant]
     Route: 065

REACTIONS (1)
  - Oesophageal irritation [Unknown]
